FAERS Safety Report 4976035-7 (Version None)
Quarter: 2006Q2

REPORT INFORMATION
  Report Type: 
  Country: None (occurrence: None)
  Receive Date: 20060418
  Receipt Date: 20060106
  Transmission Date: 20061013
  Serious: Yes (Hospitalization)
  Sender: FDA-Public Use
  Company Number: US-MERCK-0601USA00831

PATIENT
  Age: 73 Year
  Sex: Female
  Weight: 66 kg

DRUGS (14)
  1. COZAAR [Concomitant]
     Route: 048
  2. VIOXX [Suspect]
     Indication: PAIN IN EXTREMITY
     Route: 048
     Dates: start: 20010101, end: 20040101
  3. VIOXX [Suspect]
     Indication: NEUROPATHY PERIPHERAL
     Route: 048
     Dates: start: 20010101, end: 20040101
  4. LASIX [Concomitant]
     Route: 065
  5. COUMADIN [Concomitant]
     Route: 065
  6. ROXILOX [Concomitant]
     Route: 065
  7. PLAVIX [Concomitant]
     Route: 065
  8. AMITRIPTYLINE HYDROCHLORIDE [Concomitant]
     Route: 065
  9. TIZANIDINE HYDROCHLORIDE [Concomitant]
     Route: 065
  10. PREDNISONE [Concomitant]
     Route: 065
  11. PREMARIN [Concomitant]
     Route: 065
  12. SINGULAIR [Concomitant]
     Route: 065
  13. CLONIDINE HYDROCHLORIDE [Concomitant]
     Route: 065
  14. NEURONTIN [Concomitant]
     Route: 065

REACTIONS (1)
  - MYOCARDIAL INFARCTION [None]
